FAERS Safety Report 8031474-5 (Version None)
Quarter: 2011Q4

REPORT INFORMATION
  Report Type: 
  Country: None (occurrence: None)
  Receive Date: 20111201
  Receipt Date: 20110426
  Transmission Date: 20120403
  Serious: Yes (Other)
  Sender: FDA-Public Use
  Company Number: 275289USA

PATIENT
  Age: 7 Year
  Sex: Male

DRUGS (1)
  1. AMOXICILLIN AND CLAVULANATE POTASSIUM [Suspect]
     Indication: EAR INFECTION
     Dosage: 1200 MG (600 MG, 2 IN 1 D), ORAL
     Route: 048
     Dates: start: 20110307, end: 20110308

REACTIONS (5)
  - LIP SWELLING [None]
  - OEDEMA MOUTH [None]
  - CONVULSION [None]
  - EPISTAXIS [None]
  - FAECAL INCONTINENCE [None]
